FAERS Safety Report 5759900-2 (Version None)
Quarter: 2008Q2

REPORT INFORMATION
  Report Type: 
  Country: None (occurrence: None)
  Receive Date: 20080605
  Receipt Date: 20080530
  Transmission Date: 20081010
  Serious: Yes (Life-Threatening, Other)
  Sender: FDA-Public Use
  Company Number: US-JNJFOC-20080600538

PATIENT
  Sex: Male

DRUGS (1)
  1. LEVAQUIN [Suspect]
     Indication: DRUG USE FOR UNKNOWN INDICATION
     Route: 065

REACTIONS (9)
  - ANXIETY [None]
  - BALANCE DISORDER [None]
  - FATIGUE [None]
  - INSOMNIA [None]
  - METAMORPHOPSIA [None]
  - PAIN [None]
  - PANIC ATTACK [None]
  - SUICIDE ATTEMPT [None]
  - TREMOR [None]
